FAERS Safety Report 7948743-7 (Version None)
Quarter: 2011Q4

REPORT INFORMATION
  Report Type: 
  Country: None (occurrence: None)
  Receive Date: 20111130
  Receipt Date: 20111122
  Transmission Date: 20120403
  Serious: Yes (Other)
  Sender: FDA-Public Use
  Company Number: US-AMGEN-USASP2011061698

PATIENT
  Age: 60 Year
  Sex: Male

DRUGS (21)
  1. HEPARIN [Concomitant]
  2. EPOGEN [Suspect]
  3. NORVASC [Concomitant]
  4. VASOTEC [Concomitant]
  5. RENVELA [Concomitant]
  6. OMEPRAZOLE [Concomitant]
  7. LIDOCAINE [Concomitant]
  8. NEPHROVITE [Concomitant]
  9. LEVOTHYROXINE SODIUM [Concomitant]
  10. METOPROLOL TARTRATE [Concomitant]
  11. SEROQUEL [Concomitant]
  12. EPOGEN [Suspect]
     Indication: RENAL FAILURE CHRONIC
     Dosage: UNK
  13. PROMETHAZINE [Concomitant]
  14. PRAVASTATIN [Concomitant]
  15. SENSIPAR [Suspect]
     Indication: HYPERPARATHYROIDISM SECONDARY
     Dosage: 30 MG, QD
     Dates: start: 20090809
  16. FOLIC ACID [Concomitant]
  17. DOCUSATE [Concomitant]
  18. IRON [Concomitant]
  19. BRINZOLAMIDE [Concomitant]
  20. NITROGLYCERIN [Concomitant]
  21. HECTOROL [Concomitant]

REACTIONS (2)
  - DYSPNOEA [None]
  - SWOLLEN TONGUE [None]
